FAERS Safety Report 26091016 (Version 1)
Quarter: 2025Q4

REPORT INFORMATION
  Report Type: Spontaneous
  Country: US (occurrence: US)
  Receive Date: 20251126
  Receipt Date: 20251126
  Transmission Date: 20260118
  Serious: Yes (Other)
  Sender: Shorla Pharma
  Company Number: US-SHORLA PHARMA LTD-2025SHO000007

PATIENT
  Age: 8 Year
  Sex: Male

DRUGS (8)
  1. THIOTEPA [Suspect]
     Active Substance: THIOTEPA
     Indication: Surgical preconditioning
     Dosage: 5 MILLIGRAM/KILOGRAM, QD
     Route: 065
  2. HYDROXYUREA [Suspect]
     Active Substance: HYDROXYUREA
     Indication: Surgical preconditioning
     Dosage: 30 MILLIGRAM/KILOGRAM, QD (DAY 40-11)
     Route: 065
  3. BUSULFAN [Suspect]
     Active Substance: BUSULFAN
     Indication: Surgical preconditioning
     Dosage: TO ACHIEVE AN AUC 24H OF 3600 TO 6000MM*MIN/L (DAY 8 TO 5)
     Route: 065
  4. LAPINE T-LYMPHOCYTE IMMUNE GLOBULIN [Suspect]
     Active Substance: LAPINE T-LYMPHOCYTE IMMUNE GLOBULIN
     Indication: Surgical preconditioning
     Dosage: 3 MILLIGRAM/KILOGRAM (DAY 9 TO DAY 7)
     Route: 065
  5. FLUDARABINE [Suspect]
     Active Substance: FLUDARABINE PHOSPHATE
     Indication: Surgical preconditioning
     Dosage: 30 MILLIGRAM/SQ. METER (DAY 6 TO 2)
     Route: 065
  6. CYCLOSPORINE [Suspect]
     Active Substance: CYCLOSPORINE
     Indication: Prophylaxis against transplant rejection
     Dosage: BEGINNING DAY 1 (INFUSION)
     Route: 065
  7. MYCOPHENOLATE MOFETIL [Suspect]
     Active Substance: MYCOPHENOLATE MOFETIL
     Indication: Prophylaxis against transplant rejection
     Dosage: BEGINNING DAY 1 UNTIL DAY 45
     Route: 065
  8. TACROLIMUS [Suspect]
     Active Substance: TACROLIMUS
     Indication: Prophylaxis against transplant rejection
     Route: 048

REACTIONS (9)
  - Transplant failure [Unknown]
  - Thrombotic microangiopathy [Unknown]
  - Neutropenic colitis [Unknown]
  - Pneumonia staphylococcal [Unknown]
  - BK virus infection [Unknown]
  - Adenovirus infection [Unknown]
  - Cytomegalovirus infection reactivation [Unknown]
  - Cystitis haemorrhagic [Unknown]
  - Urinary tract obstruction [Unknown]
